FAERS Safety Report 25035636 (Version 4)
Quarter: 2025Q3

REPORT INFORMATION
  Report Type: Spontaneous
  Country: CA (occurrence: CA)
  Receive Date: 20250304
  Receipt Date: 20250901
  Transmission Date: 20251020
  Serious: Yes (Death, Life-Threatening, Hospitalization, Disabling, Other)
  Sender: Haleon PLC
  Company Number: CA-SANDOZ-SDZ2024CA079576

PATIENT
  Age: 44 Year
  Sex: Female
  Weight: 78 kg

DRUGS (639)
  1. DICLOFENAC SODIUM [Suspect]
     Active Substance: DICLOFENAC SODIUM
     Indication: Product used for unknown indication
     Route: 048
  2. DICLOFENAC SODIUM [Suspect]
     Active Substance: DICLOFENAC SODIUM
  3. DICLOFENAC SODIUM [Suspect]
     Active Substance: DICLOFENAC SODIUM
     Route: 058
  4. DICLOFENAC SODIUM [Suspect]
     Active Substance: DICLOFENAC SODIUM
  5. DICLOFENAC SODIUM [Suspect]
     Active Substance: DICLOFENAC SODIUM
  6. DICLOFENAC SODIUM [Suspect]
     Active Substance: DICLOFENAC SODIUM
  7. DICLOFENAC SODIUM [Suspect]
     Active Substance: DICLOFENAC SODIUM
  8. DICLOFENAC SODIUM [Suspect]
     Active Substance: DICLOFENAC SODIUM
  9. DICLOFENAC SODIUM [Suspect]
     Active Substance: DICLOFENAC SODIUM
  10. DICLOFENAC SODIUM [Suspect]
     Active Substance: DICLOFENAC SODIUM
     Indication: Product used for unknown indication
  11. DICLOFENAC SODIUM [Suspect]
     Active Substance: DICLOFENAC SODIUM
  12. DICLOFENAC SODIUM [Suspect]
     Active Substance: DICLOFENAC SODIUM
  13. DICLOFENAC SODIUM [Suspect]
     Active Substance: DICLOFENAC SODIUM
     Route: 050
  14. DICLOFENAC SODIUM [Suspect]
     Active Substance: DICLOFENAC SODIUM
  15. DICLOFENAC SODIUM [Suspect]
     Active Substance: DICLOFENAC SODIUM
  16. DICLOFENAC SODIUM [Suspect]
     Active Substance: DICLOFENAC SODIUM
  17. DICLOFENAC SODIUM [Suspect]
     Active Substance: DICLOFENAC SODIUM
  18. DICLOFENAC SODIUM [Suspect]
     Active Substance: DICLOFENAC SODIUM
     Route: 050
  19. DICLOFENAC POTASSIUM [Suspect]
     Active Substance: DICLOFENAC POTASSIUM
     Indication: Product used for unknown indication
     Route: 058
  20. DICLOFENAC POTASSIUM [Suspect]
     Active Substance: DICLOFENAC POTASSIUM
     Route: 048
  21. DICLOFENAC POTASSIUM [Suspect]
     Active Substance: DICLOFENAC POTASSIUM
  22. DICLOFENAC POTASSIUM [Suspect]
     Active Substance: DICLOFENAC POTASSIUM
  23. TUMS ULTRA [Suspect]
     Active Substance: CALCIUM CARBONATE
     Indication: Product used for unknown indication
  24. TUMS REGULAR STRENGTH [Suspect]
     Active Substance: CALCIUM CARBONATE
     Indication: Product used for unknown indication
  25. TUMS REGULAR STRENGTH [Suspect]
     Active Substance: CALCIUM CARBONATE
  26. DICLOFENAC DIETHYLAMINE [Suspect]
     Active Substance: DICLOFENAC DIETHYLAMINE
     Indication: Product used for unknown indication
     Route: 058
  27. DICLOFENAC DIETHYLAMINE [Suspect]
     Active Substance: DICLOFENAC DIETHYLAMINE
  28. DICLOFENAC DIETHYLAMINE [Suspect]
     Active Substance: DICLOFENAC DIETHYLAMINE
  29. DICLOFENAC DIETHYLAMINE [Suspect]
     Active Substance: DICLOFENAC DIETHYLAMINE
  30. DICLOFENAC DIETHYLAMINE [Suspect]
     Active Substance: DICLOFENAC DIETHYLAMINE
     Route: 048
  31. DICLOFENAC DIETHYLAMINE [Suspect]
     Active Substance: DICLOFENAC DIETHYLAMINE
  32. DICLOFENAC DIETHYLAMINE [Suspect]
     Active Substance: DICLOFENAC DIETHYLAMINE
  33. DICLOFENAC DIETHYLAMINE [Suspect]
     Active Substance: DICLOFENAC DIETHYLAMINE
  34. PREDNISOLONE [Suspect]
     Active Substance: PREDNISOLONE
     Indication: Product used for unknown indication
  35. PREDNISOLONE [Suspect]
     Active Substance: PREDNISOLONE
  36. PREDNISOLONE [Suspect]
     Active Substance: PREDNISOLONE
     Route: 048
  37. PREDNISOLONE [Suspect]
     Active Substance: PREDNISOLONE
     Route: 048
  38. PREGABALIN [Suspect]
     Active Substance: PREGABALIN
     Indication: Product used for unknown indication
  39. PREGABALIN [Suspect]
     Active Substance: PREGABALIN
  40. COSENTYX [Suspect]
     Active Substance: SECUKINUMAB
     Indication: Rheumatoid arthritis
     Route: 042
  41. COSENTYX [Suspect]
     Active Substance: SECUKINUMAB
     Route: 005
  42. COSENTYX [Suspect]
     Active Substance: SECUKINUMAB
     Route: 005
  43. COSENTYX [Suspect]
     Active Substance: SECUKINUMAB
     Route: 042
  44. COSENTYX [Suspect]
     Active Substance: SECUKINUMAB
     Route: 050
  45. COSENTYX [Suspect]
     Active Substance: SECUKINUMAB
     Route: 050
  46. COSENTYX [Suspect]
     Active Substance: SECUKINUMAB
     Route: 050
  47. COSENTYX [Suspect]
     Active Substance: SECUKINUMAB
     Route: 050
  48. APREMILAST [Suspect]
     Active Substance: APREMILAST
     Indication: Product used for unknown indication
     Route: 048
  49. APREMILAST [Suspect]
     Active Substance: APREMILAST
  50. DILTIAZEM [Suspect]
     Active Substance: DILTIAZEM
     Indication: Product used for unknown indication
  51. DILTIAZEM HYDROCHLORIDE [Suspect]
     Active Substance: DILTIAZEM HYDROCHLORIDE
     Indication: Product used for unknown indication
     Route: 042
  52. DILTIAZEM HYDROCHLORIDE [Suspect]
     Active Substance: DILTIAZEM HYDROCHLORIDE
  53. DILTIAZEM HYDROCHLORIDE [Suspect]
     Active Substance: DILTIAZEM HYDROCHLORIDE
  54. DILTIAZEM HYDROCHLORIDE [Suspect]
     Active Substance: DILTIAZEM HYDROCHLORIDE
     Route: 050
  55. HYDROCORTISONE SODIUM SUCCINATE [Suspect]
     Active Substance: HYDROCORTISONE SODIUM SUCCINATE
     Indication: Rheumatoid arthritis
  56. HYDROCORTISONE SODIUM SUCCINATE [Suspect]
     Active Substance: HYDROCORTISONE SODIUM SUCCINATE
  57. HYDROCORTISONE SODIUM SUCCINATE [Suspect]
     Active Substance: HYDROCORTISONE SODIUM SUCCINATE
  58. HYDROCORTISONE SODIUM SUCCINATE [Suspect]
     Active Substance: HYDROCORTISONE SODIUM SUCCINATE
  59. HYDROCORTISONE SODIUM SUCCINATE [Suspect]
     Active Substance: HYDROCORTISONE SODIUM SUCCINATE
  60. HYDROCORTISONE SODIUM SUCCINATE [Suspect]
     Active Substance: HYDROCORTISONE SODIUM SUCCINATE
  61. HYDROCORTISONE SODIUM SUCCINATE [Suspect]
     Active Substance: HYDROCORTISONE SODIUM SUCCINATE
  62. HYDROCORTISONE SODIUM SUCCINATE [Suspect]
     Active Substance: HYDROCORTISONE SODIUM SUCCINATE
  63. HYDROCORTISONE SODIUM SUCCINATE [Suspect]
     Active Substance: HYDROCORTISONE SODIUM SUCCINATE
  64. HYDROCORTISONE SODIUM SUCCINATE [Suspect]
     Active Substance: HYDROCORTISONE SODIUM SUCCINATE
  65. HYDROCORTISONE SODIUM SUCCINATE [Suspect]
     Active Substance: HYDROCORTISONE SODIUM SUCCINATE
     Route: 050
  66. HYDROCORTISONE SODIUM SUCCINATE [Suspect]
     Active Substance: HYDROCORTISONE SODIUM SUCCINATE
  67. HYDROCORTISONE SODIUM SUCCINATE [Suspect]
     Active Substance: HYDROCORTISONE SODIUM SUCCINATE
     Route: 050
  68. HYDROCORTISONE SODIUM SUCCINATE [Suspect]
     Active Substance: HYDROCORTISONE SODIUM SUCCINATE
  69. HYDROCORTISONE SODIUM SUCCINATE [Suspect]
     Active Substance: HYDROCORTISONE SODIUM SUCCINATE
  70. HYDROCORTISONE SODIUM SUCCINATE [Suspect]
     Active Substance: HYDROCORTISONE SODIUM SUCCINATE
     Route: 050
  71. HYDROCORTISONE SODIUM SUCCINATE [Suspect]
     Active Substance: HYDROCORTISONE SODIUM SUCCINATE
  72. VITAMIN C [Suspect]
     Active Substance: ASCORBIC ACID
     Indication: Product used for unknown indication
  73. VITAMIN C [Suspect]
     Active Substance: ASCORBIC ACID
  74. CELECOXIB [Suspect]
     Active Substance: CELECOXIB
     Indication: Rheumatoid arthritis
     Route: 048
  75. CELECOXIB [Suspect]
     Active Substance: CELECOXIB
     Dosage: UNK, QW
     Route: 048
  76. CELECOXIB [Suspect]
     Active Substance: CELECOXIB
  77. CELECOXIB [Suspect]
     Active Substance: CELECOXIB
  78. CELECOXIB [Suspect]
     Active Substance: CELECOXIB
  79. CELECOXIB [Suspect]
     Active Substance: CELECOXIB
  80. CELECOXIB [Suspect]
     Active Substance: CELECOXIB
  81. CELECOXIB [Suspect]
     Active Substance: CELECOXIB
     Route: 050
  82. CELECOXIB [Suspect]
     Active Substance: CELECOXIB
  83. METHOTREXATE [Suspect]
     Active Substance: METHOTREXATE
     Indication: Rheumatoid arthritis
     Route: 058
  84. METHOTREXATE [Suspect]
     Active Substance: METHOTREXATE
     Dosage: 25 MG, QD, ROA: INTRA-ARTERIAL
  85. METHOTREXATE [Suspect]
     Active Substance: METHOTREXATE
     Dosage: 20 MG, QW
  86. METHOTREXATE [Suspect]
     Active Substance: METHOTREXATE
     Route: 048
  87. METHOTREXATE [Suspect]
     Active Substance: METHOTREXATE
     Route: 048
  88. METHOTREXATE [Suspect]
     Active Substance: METHOTREXATE
     Dosage: 25 MG, QW
     Route: 048
  89. METHOTREXATE [Suspect]
     Active Substance: METHOTREXATE
     Dosage: 20 MG, QD
     Route: 048
  90. METHOTREXATE [Suspect]
     Active Substance: METHOTREXATE
     Route: 048
  91. METHOTREXATE [Suspect]
     Active Substance: METHOTREXATE
     Route: 048
  92. METHOTREXATE [Suspect]
     Active Substance: METHOTREXATE
     Dosage: 20 MG, QD
     Route: 048
  93. METHOTREXATE [Suspect]
     Active Substance: METHOTREXATE
     Dosage: 25 MG, QW
     Route: 048
  94. METHOTREXATE [Suspect]
     Active Substance: METHOTREXATE
     Route: 048
  95. METHOTREXATE [Suspect]
     Active Substance: METHOTREXATE
     Route: 048
  96. METHOTREXATE [Suspect]
     Active Substance: METHOTREXATE
     Dosage: 20 MG, QD
     Route: 048
  97. METHOTREXATE [Suspect]
     Active Substance: METHOTREXATE
     Route: 048
  98. METHOTREXATE [Suspect]
     Active Substance: METHOTREXATE
     Dosage: 2 MG, QW
     Route: 048
  99. METHOTREXATE [Suspect]
     Active Substance: METHOTREXATE
     Dosage: 2 MG, QD
     Route: 048
  100. METHOTREXATE [Suspect]
     Active Substance: METHOTREXATE
     Dosage: 15 MG, QD
     Route: 048
  101. METHOTREXATE [Suspect]
     Active Substance: METHOTREXATE
     Route: 048
  102. METHOTREXATE [Suspect]
     Active Substance: METHOTREXATE
     Route: 048
  103. METHOTREXATE [Suspect]
     Active Substance: METHOTREXATE
     Route: 050
  104. METHOTREXATE [Suspect]
     Active Substance: METHOTREXATE
     Route: 050
  105. METHOTREXATE [Suspect]
     Active Substance: METHOTREXATE
     Route: 050
  106. ACETAMINOPHEN [Suspect]
     Active Substance: ACETAMINOPHEN
     Indication: Rheumatoid arthritis
  107. ACETAMINOPHEN [Suspect]
     Active Substance: ACETAMINOPHEN
     Indication: Pyrexia
  108. ACETAMINOPHEN [Suspect]
     Active Substance: ACETAMINOPHEN
     Indication: Pain
  109. ACETAMINOPHEN [Suspect]
     Active Substance: ACETAMINOPHEN
  110. ACETAMINOPHEN [Suspect]
     Active Substance: ACETAMINOPHEN
  111. ACETAMINOPHEN\OXYCODONE HYDROCHLORIDE [Suspect]
     Active Substance: ACETAMINOPHEN\OXYCODONE HYDROCHLORIDE
     Indication: Product used for unknown indication
  112. ALENDRONIC ACID [Suspect]
     Active Substance: ALENDRONIC ACID
     Indication: Rheumatoid arthritis
  113. ALENDRONIC ACID [Suspect]
     Active Substance: ALENDRONIC ACID
  114. ALENDRONIC ACID [Suspect]
     Active Substance: ALENDRONIC ACID
  115. ALENDRONIC ACID [Suspect]
     Active Substance: ALENDRONIC ACID
     Route: 048
  116. ALENDRONIC ACID [Suspect]
     Active Substance: ALENDRONIC ACID
  117. ALENDRONIC ACID [Suspect]
     Active Substance: ALENDRONIC ACID
  118. ALENDRONIC ACID [Suspect]
     Active Substance: ALENDRONIC ACID
  119. ALENDRONIC ACID [Suspect]
     Active Substance: ALENDRONIC ACID
     Route: 050
  120. ALENDRONIC ACID [Suspect]
     Active Substance: ALENDRONIC ACID
  121. APREPITANT [Suspect]
     Active Substance: APREPITANT
     Indication: Product used for unknown indication
     Route: 042
  122. APREPITANT [Suspect]
     Active Substance: APREPITANT
     Route: 042
  123. APREPITANT [Suspect]
     Active Substance: APREPITANT
  124. APREPITANT [Suspect]
     Active Substance: APREPITANT
     Route: 048
  125. APREPITANT [Suspect]
     Active Substance: APREPITANT
     Route: 050
  126. APREPITANT [Suspect]
     Active Substance: APREPITANT
     Route: 050
  127. CHLORAPREP [Suspect]
     Active Substance: CHLORHEXIDINE GLUCONATE\ISOPROPYL ALCOHOL
     Indication: Product used for unknown indication
  128. CHLORAPREP [Suspect]
     Active Substance: CHLORHEXIDINE GLUCONATE\ISOPROPYL ALCOHOL
  129. CHLORAPREP [Suspect]
     Active Substance: CHLORHEXIDINE GLUCONATE\ISOPROPYL ALCOHOL
  130. CHLORAPREP [Suspect]
     Active Substance: CHLORHEXIDINE GLUCONATE\ISOPROPYL ALCOHOL
  131. CHLORAPREP [Suspect]
     Active Substance: CHLORHEXIDINE GLUCONATE\ISOPROPYL ALCOHOL
  132. CHLORAPREP [Suspect]
     Active Substance: CHLORHEXIDINE GLUCONATE\ISOPROPYL ALCOHOL
     Route: 050
  133. CHLORAPREP [Suspect]
     Active Substance: CHLORHEXIDINE GLUCONATE\ISOPROPYL ALCOHOL
  134. CHLORAPREP [Suspect]
     Active Substance: CHLORHEXIDINE GLUCONATE\ISOPROPYL ALCOHOL
  135. CHLORHEXIDINE GLUCONATE [Suspect]
     Active Substance: CHLORHEXIDINE GLUCONATE
     Indication: Product used for unknown indication
  136. CHLORHEXIDINE GLUCONATE [Suspect]
     Active Substance: CHLORHEXIDINE GLUCONATE
  137. CHLORHEXIDINE GLUCONATE [Suspect]
     Active Substance: CHLORHEXIDINE GLUCONATE
  138. CHLORHEXIDINE GLUCONATE [Suspect]
     Active Substance: CHLORHEXIDINE GLUCONATE
  139. CHLORHEXIDINE GLUCONATE [Suspect]
     Active Substance: CHLORHEXIDINE GLUCONATE
  140. CHLORHEXIDINE GLUCONATE [Suspect]
     Active Substance: CHLORHEXIDINE GLUCONATE
  141. CHLORHEXIDINE GLUCONATE [Suspect]
     Active Substance: CHLORHEXIDINE GLUCONATE
  142. CHLORHEXIDINE GLUCONATE [Suspect]
     Active Substance: CHLORHEXIDINE GLUCONATE
  143. CHLORHEXIDINE GLUCONATE [Suspect]
     Active Substance: CHLORHEXIDINE GLUCONATE
  144. CHLORHEXIDINE GLUCONATE [Suspect]
     Active Substance: CHLORHEXIDINE GLUCONATE
  145. CHLORHEXIDINE GLUCONATE [Suspect]
     Active Substance: CHLORHEXIDINE GLUCONATE
  146. CHLORHEXIDINE GLUCONATE [Suspect]
     Active Substance: CHLORHEXIDINE GLUCONATE
     Route: 050
  147. CHLORHEXIDINE GLUCONATE [Suspect]
     Active Substance: CHLORHEXIDINE GLUCONATE
  148. CHLORHEXIDINE GLUCONATE [Suspect]
     Active Substance: CHLORHEXIDINE GLUCONATE
  149. CHLORHEXIDINE GLUCONATE [Suspect]
     Active Substance: CHLORHEXIDINE GLUCONATE
  150. CHLORHEXIDINE GLUCONATE [Suspect]
     Active Substance: CHLORHEXIDINE GLUCONATE
  151. CHLORHEXIDINE GLUCONATE [Suspect]
     Active Substance: CHLORHEXIDINE GLUCONATE
  152. CHLORHEXIDINE GLUCONATE [Suspect]
     Active Substance: CHLORHEXIDINE GLUCONATE
  153. CORTISONE ACETATE [Suspect]
     Active Substance: CORTISONE ACETATE
     Indication: Rheumatoid arthritis
  154. CORTISONE ACETATE [Suspect]
     Active Substance: CORTISONE ACETATE
  155. CORTISONE ACETATE [Suspect]
     Active Substance: CORTISONE ACETATE
  156. CORTISONE ACETATE [Suspect]
     Active Substance: CORTISONE ACETATE
     Route: 050
  157. CORTISONE ACETATE [Suspect]
     Active Substance: CORTISONE ACETATE
  158. CORTISONE ACETATE [Suspect]
     Active Substance: CORTISONE ACETATE
  159. CORTISONE ACETATE [Suspect]
     Active Substance: CORTISONE ACETATE
  160. CORTISONE ACETATE [Suspect]
     Active Substance: CORTISONE ACETATE
     Route: 050
  161. CORTISONE ACETATE [Suspect]
     Active Substance: CORTISONE ACETATE
  162. DOXYCYCLINE [Suspect]
     Active Substance: DOXYCYCLINE
     Indication: Product used for unknown indication
  163. ENBREL [Suspect]
     Active Substance: ETANERCEPT
     Indication: Rheumatoid arthritis
  164. ENBREL [Suspect]
     Active Substance: ETANERCEPT
     Indication: Psoriatic arthropathy
  165. ENBREL [Suspect]
     Active Substance: ETANERCEPT
     Indication: Product used for unknown indication
     Dosage: 20 MG, QD
     Route: 058
  166. ENBREL [Suspect]
     Active Substance: ETANERCEPT
     Dosage: 20 MG, QW
     Route: 058
  167. ENBREL [Suspect]
     Active Substance: ETANERCEPT
  168. ENBREL [Suspect]
     Active Substance: ETANERCEPT
     Route: 058
  169. ENBREL [Suspect]
     Active Substance: ETANERCEPT
     Route: 058
  170. ENBREL [Suspect]
     Active Substance: ETANERCEPT
     Dosage: 50 MG, QW
     Route: 058
  171. ENBREL [Suspect]
     Active Substance: ETANERCEPT
     Route: 058
  172. ENBREL [Suspect]
     Active Substance: ETANERCEPT
  173. ENBREL [Suspect]
     Active Substance: ETANERCEPT
  174. ENBREL [Suspect]
     Active Substance: ETANERCEPT
  175. ENTYVIO [Suspect]
     Active Substance: VEDOLIZUMAB
     Indication: Product used for unknown indication
  176. ENTYVIO [Suspect]
     Active Substance: VEDOLIZUMAB
  177. FLUMETHASONE PIVALATE [Suspect]
     Active Substance: FLUMETHASONE PIVALATE
     Indication: Rheumatoid arthritis
     Route: 058
  178. FLUMETHASONE PIVALATE [Suspect]
     Active Substance: FLUMETHASONE PIVALATE
  179. FLUMETHASONE PIVALATE [Suspect]
     Active Substance: FLUMETHASONE PIVALATE
  180. FLUMETHASONE PIVALATE [Suspect]
     Active Substance: FLUMETHASONE PIVALATE
  181. FLUMETHASONE PIVALATE [Suspect]
     Active Substance: FLUMETHASONE PIVALATE
  182. FLUMETHASONE PIVALATE [Suspect]
     Active Substance: FLUMETHASONE PIVALATE
     Route: 050
  183. GOLIMUMAB [Suspect]
     Active Substance: GOLIMUMAB
     Indication: Rheumatoid arthritis
  184. GOLIMUMAB [Suspect]
     Active Substance: GOLIMUMAB
     Route: 058
  185. GOLIMUMAB [Suspect]
     Active Substance: GOLIMUMAB
  186. GOLIMUMAB [Suspect]
     Active Substance: GOLIMUMAB
     Route: 050
  187. HUMIRA [Suspect]
     Active Substance: ADALIMUMAB
     Indication: Rheumatoid arthritis
     Route: 058
  188. HUMIRA [Suspect]
     Active Substance: ADALIMUMAB
     Indication: Psoriatic arthropathy
     Route: 058
  189. HUMIRA [Suspect]
     Active Substance: ADALIMUMAB
  190. HUMIRA [Suspect]
     Active Substance: ADALIMUMAB
     Route: 058
  191. HUMIRA [Suspect]
     Active Substance: ADALIMUMAB
     Route: 050
  192. HUMIRA [Suspect]
     Active Substance: ADALIMUMAB
  193. HUMIRA [Suspect]
     Active Substance: ADALIMUMAB
     Route: 050
  194. HYDROXYCHLOROQUINE SULFATE [Suspect]
     Active Substance: HYDROXYCHLOROQUINE SULFATE
     Indication: Rheumatoid arthritis
     Route: 048
  195. HYDROXYCHLOROQUINE SULFATE [Suspect]
     Active Substance: HYDROXYCHLOROQUINE SULFATE
  196. HYDROXYCHLOROQUINE SULFATE [Suspect]
     Active Substance: HYDROXYCHLOROQUINE SULFATE
     Route: 048
  197. HYDROXYCHLOROQUINE SULFATE [Suspect]
     Active Substance: HYDROXYCHLOROQUINE SULFATE
     Dosage: 400 MG, QD
     Route: 048
  198. HYDROXYCHLOROQUINE SULFATE [Suspect]
     Active Substance: HYDROXYCHLOROQUINE SULFATE
  199. HYDROXYCHLOROQUINE SULFATE [Suspect]
     Active Substance: HYDROXYCHLOROQUINE SULFATE
     Dosage: 400 MG, QD
     Route: 048
  200. HYDROXYCHLOROQUINE SULFATE [Suspect]
     Active Substance: HYDROXYCHLOROQUINE SULFATE
     Dosage: 40 MG, QD
  201. HYDROXYCHLOROQUINE SULFATE [Suspect]
     Active Substance: HYDROXYCHLOROQUINE SULFATE
     Route: 048
  202. HYDROXYCHLOROQUINE SULFATE [Suspect]
     Active Substance: HYDROXYCHLOROQUINE SULFATE
  203. HYDROXYCHLOROQUINE SULFATE [Suspect]
     Active Substance: HYDROXYCHLOROQUINE SULFATE
     Route: 050
  204. INFLIXIMAB [Suspect]
     Active Substance: INFLIXIMAB
     Indication: Rheumatoid arthritis
     Route: 050
  205. INFLIXIMAB [Suspect]
     Active Substance: INFLIXIMAB
  206. INFLIXIMAB [Suspect]
     Active Substance: INFLIXIMAB
  207. INFLIXIMAB [Suspect]
     Active Substance: INFLIXIMAB
  208. INFLIXIMAB [Suspect]
     Active Substance: INFLIXIMAB
  209. INFLIXIMAB [Suspect]
     Active Substance: INFLIXIMAB
  210. INFLIXIMAB [Suspect]
     Active Substance: INFLIXIMAB
     Route: 050
  211. INFLIXIMAB [Suspect]
     Active Substance: INFLIXIMAB
     Route: 050
  212. ISOPROPYL ALCOHOL [Suspect]
     Active Substance: ISOPROPYL ALCOHOL
     Indication: Product used for unknown indication
  213. ISOPROPYL ALCOHOL [Suspect]
     Active Substance: ISOPROPYL ALCOHOL
  214. NAPROXEN SODIUM [Suspect]
     Active Substance: NAPROXEN SODIUM
     Indication: Rheumatoid arthritis
  215. NAPROXEN SODIUM [Suspect]
     Active Substance: NAPROXEN SODIUM
  216. ALFACALCIDOL [Suspect]
     Active Substance: ALFACALCIDOL
     Indication: Product used for unknown indication
  217. ALFACALCIDOL [Suspect]
     Active Substance: ALFACALCIDOL
  218. PHTHALYLSULFATHIAZOLE [Suspect]
     Active Substance: PHTHALYLSULFATHIAZOLE
     Indication: Rheumatoid arthritis
     Route: 048
  219. PHTHALYLSULFATHIAZOLE [Suspect]
     Active Substance: PHTHALYLSULFATHIAZOLE
  220. PHTHALYLSULFATHIAZOLE [Suspect]
     Active Substance: PHTHALYLSULFATHIAZOLE
     Dosage: 200 MG, QD
  221. PHTHALYLSULFATHIAZOLE [Suspect]
     Active Substance: PHTHALYLSULFATHIAZOLE
     Route: 042
  222. PHTHALYLSULFATHIAZOLE [Suspect]
     Active Substance: PHTHALYLSULFATHIAZOLE
     Route: 048
  223. PHTHALYLSULFATHIAZOLE [Suspect]
     Active Substance: PHTHALYLSULFATHIAZOLE
  224. PHTHALYLSULFATHIAZOLE [Suspect]
     Active Substance: PHTHALYLSULFATHIAZOLE
     Dosage: 2000 MG, QD
     Route: 048
  225. PHTHALYLSULFATHIAZOLE [Suspect]
     Active Substance: PHTHALYLSULFATHIAZOLE
     Route: 048
  226. PHTHALYLSULFATHIAZOLE [Suspect]
     Active Substance: PHTHALYLSULFATHIAZOLE
     Dosage: 4000 MG, QD
     Route: 048
  227. PHTHALYLSULFATHIAZOLE [Suspect]
     Active Substance: PHTHALYLSULFATHIAZOLE
     Route: 048
  228. PHTHALYLSULFATHIAZOLE [Suspect]
     Active Substance: PHTHALYLSULFATHIAZOLE
     Route: 048
  229. PHTHALYLSULFATHIAZOLE [Suspect]
     Active Substance: PHTHALYLSULFATHIAZOLE
     Route: 058
  230. PHTHALYLSULFATHIAZOLE [Suspect]
     Active Substance: PHTHALYLSULFATHIAZOLE
     Route: 048
  231. PHTHALYLSULFATHIAZOLE [Suspect]
     Active Substance: PHTHALYLSULFATHIAZOLE
  232. PHTHALYLSULFATHIAZOLE [Suspect]
     Active Substance: PHTHALYLSULFATHIAZOLE
     Route: 050
  233. PHTHALYLSULFATHIAZOLE [Suspect]
     Active Substance: PHTHALYLSULFATHIAZOLE
     Route: 050
  234. PHTHALYLSULFATHIAZOLE [Suspect]
     Active Substance: PHTHALYLSULFATHIAZOLE
     Route: 050
  235. PHTHALYLSULFATHIAZOLE [Suspect]
     Active Substance: PHTHALYLSULFATHIAZOLE
  236. PHTHALYLSULFATHIAZOLE [Suspect]
     Active Substance: PHTHALYLSULFATHIAZOLE
  237. PREDNISONE [Suspect]
     Active Substance: PREDNISONE
     Indication: Rheumatoid arthritis
     Route: 048
  238. PREDNISONE [Suspect]
     Active Substance: PREDNISONE
     Indication: Psoriatic arthropathy
  239. PREDNISONE [Suspect]
     Active Substance: PREDNISONE
     Indication: Condition aggravated
     Route: 042
  240. PREDNISONE [Suspect]
     Active Substance: PREDNISONE
  241. PREDNISONE [Suspect]
     Active Substance: PREDNISONE
     Route: 048
  242. PREDNISONE [Suspect]
     Active Substance: PREDNISONE
     Route: 048
  243. PREDNISONE [Suspect]
     Active Substance: PREDNISONE
     Route: 048
  244. PREDNISONE [Suspect]
     Active Substance: PREDNISONE
     Route: 048
  245. PREDNISONE [Suspect]
     Active Substance: PREDNISONE
     Dosage: 7.5 MG, QD
     Route: 048
  246. PREDNISONE [Suspect]
     Active Substance: PREDNISONE
  247. PREDNISONE [Suspect]
     Active Substance: PREDNISONE
  248. PREDNISONE [Suspect]
     Active Substance: PREDNISONE
     Route: 050
  249. PREDNISONE [Suspect]
     Active Substance: PREDNISONE
  250. PREDNISONE [Suspect]
     Active Substance: PREDNISONE
     Route: 050
  251. PREDNISONE [Suspect]
     Active Substance: PREDNISONE
     Route: 050
  252. PSEUDOEPHEDRINE HYDROCHLORIDE [Suspect]
     Active Substance: PSEUDOEPHEDRINE HYDROCHLORIDE
     Indication: Product used for unknown indication
  253. PSEUDOEPHEDRINE HYDROCHLORIDE [Suspect]
     Active Substance: PSEUDOEPHEDRINE HYDROCHLORIDE
  254. PSEUDOEPHEDRINE HYDROCHLORIDE [Suspect]
     Active Substance: PSEUDOEPHEDRINE HYDROCHLORIDE
  255. PSEUDOEPHEDRINE HYDROCHLORIDE [Suspect]
     Active Substance: PSEUDOEPHEDRINE HYDROCHLORIDE
  256. CETIRIZINE HYDROCHLORIDE\PSEUDOEPHEDRINE HYDROCHLORIDE [Suspect]
     Active Substance: CETIRIZINE HYDROCHLORIDE\PSEUDOEPHEDRINE HYDROCHLORIDE
     Indication: Rheumatoid arthritis
  257. CETIRIZINE HYDROCHLORIDE\PSEUDOEPHEDRINE HYDROCHLORIDE [Suspect]
     Active Substance: CETIRIZINE HYDROCHLORIDE\PSEUDOEPHEDRINE HYDROCHLORIDE
  258. CETIRIZINE HYDROCHLORIDE\PSEUDOEPHEDRINE HYDROCHLORIDE [Suspect]
     Active Substance: CETIRIZINE HYDROCHLORIDE\PSEUDOEPHEDRINE HYDROCHLORIDE
  259. CETIRIZINE HYDROCHLORIDE\PSEUDOEPHEDRINE HYDROCHLORIDE [Suspect]
     Active Substance: CETIRIZINE HYDROCHLORIDE\PSEUDOEPHEDRINE HYDROCHLORIDE
  260. CETIRIZINE HYDROCHLORIDE\PSEUDOEPHEDRINE HYDROCHLORIDE [Suspect]
     Active Substance: CETIRIZINE HYDROCHLORIDE\PSEUDOEPHEDRINE HYDROCHLORIDE
     Route: 050
  261. CETIRIZINE HYDROCHLORIDE\PSEUDOEPHEDRINE HYDROCHLORIDE [Suspect]
     Active Substance: CETIRIZINE HYDROCHLORIDE\PSEUDOEPHEDRINE HYDROCHLORIDE
  262. CETIRIZINE HYDROCHLORIDE\PSEUDOEPHEDRINE HYDROCHLORIDE [Suspect]
     Active Substance: CETIRIZINE HYDROCHLORIDE\PSEUDOEPHEDRINE HYDROCHLORIDE
  263. REMICADE [Suspect]
     Active Substance: INFLIXIMAB
     Indication: Rheumatoid arthritis
  264. REMICADE [Suspect]
     Active Substance: INFLIXIMAB
     Route: 042
  265. REMICADE [Suspect]
     Active Substance: INFLIXIMAB
     Route: 042
  266. REMICADE [Suspect]
     Active Substance: INFLIXIMAB
     Route: 050
  267. REMICADE [Suspect]
     Active Substance: INFLIXIMAB
  268. DIETARY SUPPLEMENT\HERBALS [Suspect]
     Active Substance: DIETARY SUPPLEMENT\HERBALS
     Indication: Product used for unknown indication
  269. DIETARY SUPPLEMENT\HERBALS [Suspect]
     Active Substance: DIETARY SUPPLEMENT\HERBALS
  270. SIMPONI [Suspect]
     Active Substance: GOLIMUMAB
     Indication: Rheumatoid arthritis
     Route: 058
  271. SIMPONI [Suspect]
     Active Substance: GOLIMUMAB
  272. SIMPONI [Suspect]
     Active Substance: GOLIMUMAB
  273. SIMPONI [Suspect]
     Active Substance: GOLIMUMAB
     Route: 042
  274. SIMPONI [Suspect]
     Active Substance: GOLIMUMAB
     Route: 058
  275. SIMPONI [Suspect]
     Active Substance: GOLIMUMAB
     Route: 050
  276. SIMPONI [Suspect]
     Active Substance: GOLIMUMAB
     Route: 050
  277. SIMPONI [Suspect]
     Active Substance: GOLIMUMAB
  278. SIMPONI [Suspect]
     Active Substance: GOLIMUMAB
     Route: 050
  279. STELARA [Suspect]
     Active Substance: USTEKINUMAB
     Indication: Rheumatoid arthritis
     Route: 042
  280. STELARA [Suspect]
     Active Substance: USTEKINUMAB
     Route: 058
  281. STELARA [Suspect]
     Active Substance: USTEKINUMAB
     Route: 042
  282. STELARA [Suspect]
     Active Substance: USTEKINUMAB
     Route: 058
  283. STELARA [Suspect]
     Active Substance: USTEKINUMAB
     Route: 050
  284. STELARA [Suspect]
     Active Substance: USTEKINUMAB
     Route: 050
  285. SULFAMETHOXAZOLE [Suspect]
     Active Substance: SULFAMETHOXAZOLE
     Indication: Rheumatoid arthritis
  286. SULFAMETHOXAZOLE [Suspect]
     Active Substance: SULFAMETHOXAZOLE
  287. SULFAMETHOXAZOLE AND TRIMETHOPRIM [Suspect]
     Active Substance: SULFAMETHOXAZOLE\TRIMETHOPRIM
     Indication: Product used for unknown indication
  288. SULFAMETHOXAZOLE AND TRIMETHOPRIM [Suspect]
     Active Substance: SULFAMETHOXAZOLE\TRIMETHOPRIM
  289. SULFAMETHOXAZOLE AND TRIMETHOPRIM [Suspect]
     Active Substance: SULFAMETHOXAZOLE\TRIMETHOPRIM
  290. SULFAMETHOXAZOLE AND TRIMETHOPRIM [Suspect]
     Active Substance: SULFAMETHOXAZOLE\TRIMETHOPRIM
  291. SULFAMETHOXAZOLE AND TRIMETHOPRIM [Suspect]
     Active Substance: SULFAMETHOXAZOLE\TRIMETHOPRIM
  292. SULFAMETHOXAZOLE AND TRIMETHOPRIM [Suspect]
     Active Substance: SULFAMETHOXAZOLE\TRIMETHOPRIM
  293. SULFAMETHOXAZOLE AND TRIMETHOPRIM [Suspect]
     Active Substance: SULFAMETHOXAZOLE\TRIMETHOPRIM
  294. SULFAMETHOXAZOLE AND TRIMETHOPRIM [Suspect]
     Active Substance: SULFAMETHOXAZOLE\TRIMETHOPRIM
  295. SULFASALAZINE [Suspect]
     Active Substance: SULFASALAZINE
     Indication: Product used for unknown indication
     Dosage: 200 MG, QD, DOSE FORM GASTRO-RESISTANT TABLET
     Route: 048
  296. SULFASALAZINE [Suspect]
     Active Substance: SULFASALAZINE
     Route: 058
  297. SULFASALAZINE [Suspect]
     Active Substance: SULFASALAZINE
  298. SULFASALAZINE [Suspect]
     Active Substance: SULFASALAZINE
     Route: 048
  299. SULFASALAZINE [Suspect]
     Active Substance: SULFASALAZINE
     Dosage: 400 MG, QD, DOSE FORM: GASTRO-RESISTANT TABLET
     Route: 048
  300. SULFASALAZINE [Suspect]
     Active Substance: SULFASALAZINE
  301. SULFASALAZINE [Suspect]
     Active Substance: SULFASALAZINE
     Dosage: 2000 MG, QD, DOSE FORM: GASTRO-RESISTANT TABLET
     Route: 048
  302. SULFASALAZINE [Suspect]
     Active Substance: SULFASALAZINE
     Route: 058
  303. SULFASALAZINE [Suspect]
     Active Substance: SULFASALAZINE
     Route: 058
  304. SULFASALAZINE [Suspect]
     Active Substance: SULFASALAZINE
     Route: 048
  305. SULFASALAZINE [Suspect]
     Active Substance: SULFASALAZINE
  306. SULFASALAZINE [Suspect]
     Active Substance: SULFASALAZINE
     Dosage: 4000 MG, QD, DOSE FORM: GASTRO-RESISTANT TABLET
     Route: 048
  307. SULFASALAZINE [Suspect]
     Active Substance: SULFASALAZINE
     Dosage: 4000 MG, QD, DOSE FORM: GASTRO-RESISTANT TABLET
     Route: 048
  308. SULFASALAZINE [Suspect]
     Active Substance: SULFASALAZINE
     Dosage: 1000 MG, QD, DOSE FORM: GASTRO-RESISTANT TABLET
     Route: 048
  309. SULFASALAZINE [Suspect]
     Active Substance: SULFASALAZINE
     Route: 048
  310. SULFASALAZINE [Suspect]
     Active Substance: SULFASALAZINE
     Route: 048
  311. SULFASALAZINE [Suspect]
     Active Substance: SULFASALAZINE
     Dosage: 2000 MG, QD, DOSE FORM: GASTRO-RESISTANT TABLET
     Route: 048
  312. SULFASALAZINE [Suspect]
     Active Substance: SULFASALAZINE
  313. SULFASALAZINE [Suspect]
     Active Substance: SULFASALAZINE
     Route: 048
  314. SULFASALAZINE [Suspect]
     Active Substance: SULFASALAZINE
     Route: 048
  315. SULFASALAZINE [Suspect]
     Active Substance: SULFASALAZINE
     Route: 050
  316. SULFASALAZINE [Suspect]
     Active Substance: SULFASALAZINE
     Dosage: 1 G, QD, DOSE FORM: GASTRO-RESISTANT TABLET
     Route: 050
  317. SULFASALAZINE [Suspect]
     Active Substance: SULFASALAZINE
     Dosage: 2 G, QD, DOSE FORM: GASTRO-RESISTANT TABLET
  318. SULFASALAZINE [Suspect]
     Active Substance: SULFASALAZINE
     Dosage: 2 G, QD, DOSE FORM: GASTRO-RESISTANT TABLET
     Route: 048
  319. SULFASALAZINE [Suspect]
     Active Substance: SULFASALAZINE
     Dosage: 1 G, QD, DOSE FORM: GASTRO-RESISTANT TABLET
  320. SULFASALAZINE [Suspect]
     Active Substance: SULFASALAZINE
     Dosage: 200 MG, QD, DOSE FORM: GASTRO-RESISTANT TABLET
     Route: 048
  321. SULFASALAZINE [Suspect]
     Active Substance: SULFASALAZINE
     Route: 048
  322. SULFASALAZINE [Suspect]
     Active Substance: SULFASALAZINE
     Route: 048
  323. SULFASALAZINE [Suspect]
     Active Substance: SULFASALAZINE
     Route: 048
  324. SULFASALAZINE [Suspect]
     Active Substance: SULFASALAZINE
     Route: 048
  325. SULFASALAZINE [Suspect]
     Active Substance: SULFASALAZINE
     Route: 048
  326. SULFASALAZINE [Suspect]
     Active Substance: SULFASALAZINE
     Route: 048
  327. SULFASALAZINE [Suspect]
     Active Substance: SULFASALAZINE
     Route: 050
  328. SULFASALAZINE [Suspect]
     Active Substance: SULFASALAZINE
  329. SULFASALAZINE [Suspect]
     Active Substance: SULFASALAZINE
  330. SULFASALAZINE [Suspect]
     Active Substance: SULFASALAZINE
     Route: 050
  331. SULFASALAZINE [Suspect]
     Active Substance: SULFASALAZINE
  332. SULFASALAZINE [Suspect]
     Active Substance: SULFASALAZINE
     Route: 050
  333. TOFACITINIB CITRATE [Suspect]
     Active Substance: TOFACITINIB CITRATE
     Indication: Rheumatoid arthritis
     Dosage: 10 MG, QD
  334. TOFACITINIB CITRATE [Suspect]
     Active Substance: TOFACITINIB CITRATE
     Indication: Psoriatic arthropathy
     Dosage: 5 MG, QD
     Route: 048
  335. TOFACITINIB CITRATE [Suspect]
     Active Substance: TOFACITINIB CITRATE
     Dosage: 5 MG, QD
     Route: 048
  336. TOFACITINIB CITRATE [Suspect]
     Active Substance: TOFACITINIB CITRATE
  337. TOFACITINIB CITRATE [Suspect]
     Active Substance: TOFACITINIB CITRATE
  338. TOFACITINIB CITRATE [Suspect]
     Active Substance: TOFACITINIB CITRATE
     Route: 050
  339. TOFACITINIB CITRATE [Suspect]
     Active Substance: TOFACITINIB CITRATE
  340. TRIAMCINOLONE ACETONIDE [Suspect]
     Active Substance: TRIAMCINOLONE ACETONIDE
     Indication: Rheumatoid arthritis
  341. TRIAMCINOLONE ACETONIDE [Suspect]
     Active Substance: TRIAMCINOLONE ACETONIDE
     Route: 050
  342. PREDNISONE [Suspect]
     Active Substance: PREDNISONE
     Indication: Rheumatoid arthritis
     Route: 048
  343. PREDNISONE [Suspect]
     Active Substance: PREDNISONE
     Route: 050
  344. XELJANZ [Suspect]
     Active Substance: TOFACITINIB CITRATE
     Indication: Rheumatoid arthritis
  345. XELJANZ [Suspect]
     Active Substance: TOFACITINIB CITRATE
  346. XELJANZ [Suspect]
     Active Substance: TOFACITINIB CITRATE
     Route: 048
  347. XELJANZ [Suspect]
     Active Substance: TOFACITINIB CITRATE
     Dosage: 10 MG, QD
  348. XELJANZ [Suspect]
     Active Substance: TOFACITINIB CITRATE
     Dosage: 10 MG, QD
  349. XELJANZ [Suspect]
     Active Substance: TOFACITINIB CITRATE
  350. XELJANZ [Suspect]
     Active Substance: TOFACITINIB CITRATE
  351. XELJANZ [Suspect]
     Active Substance: TOFACITINIB CITRATE
     Dosage: 10 MG, QD
  352. XELJANZ [Suspect]
     Active Substance: TOFACITINIB CITRATE
  353. XELJANZ [Suspect]
     Active Substance: TOFACITINIB CITRATE
     Route: 050
  354. XELJANZ [Suspect]
     Active Substance: TOFACITINIB CITRATE
  355. XELJANZ [Suspect]
     Active Substance: TOFACITINIB CITRATE
  356. XELJANZ [Suspect]
     Active Substance: TOFACITINIB CITRATE
     Route: 050
  357. XELJANZ [Suspect]
     Active Substance: TOFACITINIB CITRATE
  358. IODINE [Suspect]
     Active Substance: IODINE
     Indication: Product used for unknown indication
  359. IODINE [Suspect]
     Active Substance: IODINE
  360. COD LIVER OIL [Suspect]
     Active Substance: COD LIVER OIL
     Indication: Product used for unknown indication
  361. COD LIVER OIL [Suspect]
     Active Substance: COD LIVER OIL
  362. ACTEMRA [Suspect]
     Active Substance: TOCILIZUMAB
     Indication: Rheumatoid arthritis
     Dosage: 2912 MG, QW
  363. ACTEMRA [Suspect]
     Active Substance: TOCILIZUMAB
     Route: 050
  364. ACTEMRA [Suspect]
     Active Substance: TOCILIZUMAB
  365. ACTEMRA [Suspect]
     Active Substance: TOCILIZUMAB
  366. ACTEMRA [Suspect]
     Active Substance: TOCILIZUMAB
  367. ACTEMRA [Suspect]
     Active Substance: TOCILIZUMAB
  368. ACTEMRA [Suspect]
     Active Substance: TOCILIZUMAB
  369. ACTEMRA [Suspect]
     Active Substance: TOCILIZUMAB
  370. ACTEMRA [Suspect]
     Active Substance: TOCILIZUMAB
     Dosage: UNK, QW
     Route: 050
  371. ACTEMRA [Suspect]
     Active Substance: TOCILIZUMAB
  372. ACTEMRA [Suspect]
     Active Substance: TOCILIZUMAB
     Route: 050
  373. ACTEMRA [Suspect]
     Active Substance: TOCILIZUMAB
  374. ACTEMRA [Suspect]
     Active Substance: TOCILIZUMAB
  375. ACTEMRA [Suspect]
     Active Substance: TOCILIZUMAB
  376. ACTEMRA [Suspect]
     Active Substance: TOCILIZUMAB
     Dosage: 3011.2 MG, QW
     Route: 050
  377. ACTEMRA [Suspect]
     Active Substance: TOCILIZUMAB
     Route: 050
  378. ACTEMRA [Suspect]
     Active Substance: TOCILIZUMAB
  379. ACTEMRA [Suspect]
     Active Substance: TOCILIZUMAB
  380. ACTEMRA [Suspect]
     Active Substance: TOCILIZUMAB
     Route: 050
  381. ACTEMRA [Suspect]
     Active Substance: TOCILIZUMAB
     Dosage: 2912 MG, QW
     Route: 050
  382. ACTEMRA [Suspect]
     Active Substance: TOCILIZUMAB
  383. ACTEMRA [Suspect]
     Active Substance: TOCILIZUMAB
  384. ACTEMRA [Suspect]
     Active Substance: TOCILIZUMAB
     Route: 050
  385. ACTEMRA [Suspect]
     Active Substance: TOCILIZUMAB
  386. ACTEMRA [Suspect]
     Active Substance: TOCILIZUMAB
  387. ACTEMRA [Suspect]
     Active Substance: TOCILIZUMAB
     Route: 050
  388. ACTEMRA [Suspect]
     Active Substance: TOCILIZUMAB
  389. ACTEMRA [Suspect]
     Active Substance: TOCILIZUMAB
     Dosage: 752 MG, QW
     Route: 050
  390. ACTEMRA [Suspect]
     Active Substance: TOCILIZUMAB
     Route: 050
  391. ACTEMRA [Suspect]
     Active Substance: TOCILIZUMAB
  392. ACTEMRA [Suspect]
     Active Substance: TOCILIZUMAB
  393. ACTEMRA [Suspect]
     Active Substance: TOCILIZUMAB
  394. ACTEMRA [Suspect]
     Active Substance: TOCILIZUMAB
     Route: 050
  395. ACTEMRA [Suspect]
     Active Substance: TOCILIZUMAB
  396. ACTEMRA [Suspect]
     Active Substance: TOCILIZUMAB
     Route: 050
  397. ACTEMRA [Suspect]
     Active Substance: TOCILIZUMAB
  398. ACTEMRA [Suspect]
     Active Substance: TOCILIZUMAB
     Route: 050
  399. ACTEMRA [Suspect]
     Active Substance: TOCILIZUMAB
  400. ACTEMRA [Suspect]
     Active Substance: TOCILIZUMAB
     Route: 050
  401. ACTEMRA [Suspect]
     Active Substance: TOCILIZUMAB
     Route: 050
  402. ACTEMRA [Suspect]
     Active Substance: TOCILIZUMAB
     Route: 050
  403. ACTEMRA [Suspect]
     Active Substance: TOCILIZUMAB
  404. ACTEMRA [Suspect]
     Active Substance: TOCILIZUMAB
     Route: 050
  405. ACTEMRA [Suspect]
     Active Substance: TOCILIZUMAB
     Route: 050
  406. ACTEMRA [Suspect]
     Active Substance: TOCILIZUMAB
  407. ACTEMRA [Suspect]
     Active Substance: TOCILIZUMAB
  408. ACTEMRA [Suspect]
     Active Substance: TOCILIZUMAB
     Route: 050
  409. ACTEMRA [Suspect]
     Active Substance: TOCILIZUMAB
  410. ACTEMRA [Suspect]
     Active Substance: TOCILIZUMAB
     Route: 050
  411. PREDNISONE [Suspect]
     Active Substance: PREDNISONE
     Indication: Rheumatoid arthritis
     Route: 048
  412. PREDNISONE [Suspect]
     Active Substance: PREDNISONE
     Indication: Systemic lupus erythematosus
  413. PREDNISONE [Suspect]
     Active Substance: PREDNISONE
     Indication: Synovitis
  414. PREDNISONE [Suspect]
     Active Substance: PREDNISONE
     Indication: Psoriatic arthropathy
  415. PREDNISONE [Suspect]
     Active Substance: PREDNISONE
     Indication: Pemphigus
     Route: 048
  416. PREDNISONE [Suspect]
     Active Substance: PREDNISONE
     Indication: Inflammation
     Route: 048
  417. PREDNISONE [Suspect]
     Active Substance: PREDNISONE
     Indication: Bursitis
     Route: 048
  418. PREDNISONE [Suspect]
     Active Substance: PREDNISONE
  419. PREDNISONE [Suspect]
     Active Substance: PREDNISONE
  420. PREDNISONE [Suspect]
     Active Substance: PREDNISONE
  421. PREDNISONE [Suspect]
     Active Substance: PREDNISONE
     Route: 050
  422. PREDNISONE [Suspect]
     Active Substance: PREDNISONE
  423. FOLIC ACID [Suspect]
     Active Substance: FOLIC ACID
     Indication: Rheumatoid arthritis
  424. FOLIC ACID [Suspect]
     Active Substance: FOLIC ACID
  425. FOLIC ACID [Suspect]
     Active Substance: FOLIC ACID
  426. FOLIC ACID [Suspect]
     Active Substance: FOLIC ACID
  427. FOLIC ACID [Suspect]
     Active Substance: FOLIC ACID
     Dosage: 1 MG, QW
  428. FOLIC ACID [Suspect]
     Active Substance: FOLIC ACID
  429. FOLIC ACID [Suspect]
     Active Substance: FOLIC ACID
  430. FOLIC ACID [Suspect]
     Active Substance: FOLIC ACID
  431. FOLIC ACID [Suspect]
     Active Substance: FOLIC ACID
     Route: 050
  432. FOLIC ACID [Suspect]
     Active Substance: FOLIC ACID
     Route: 050
  433. FOLIC ACID [Suspect]
     Active Substance: FOLIC ACID
     Route: 050
  434. FOLIC ACID [Suspect]
     Active Substance: FOLIC ACID
  435. FOLIC ACID [Suspect]
     Active Substance: FOLIC ACID
  436. FOLIC ACID [Suspect]
     Active Substance: FOLIC ACID
  437. FOLIC ACID [Suspect]
     Active Substance: FOLIC ACID
     Route: 050
  438. FOLIC ACID [Suspect]
     Active Substance: FOLIC ACID
  439. FOLIC ACID [Suspect]
     Active Substance: FOLIC ACID
  440. FOLIC ACID [Suspect]
     Active Substance: FOLIC ACID
  441. FOLIC ACID [Suspect]
     Active Substance: FOLIC ACID
  442. FOLIC ACID [Suspect]
     Active Substance: FOLIC ACID
  443. FOLIC ACID [Suspect]
     Active Substance: FOLIC ACID
  444. FOLIC ACID [Suspect]
     Active Substance: FOLIC ACID
     Route: 048
  445. FOLIC ACID [Suspect]
     Active Substance: FOLIC ACID
     Route: 050
  446. FOLIC ACID [Suspect]
     Active Substance: FOLIC ACID
  447. FOLIC ACID [Suspect]
     Active Substance: FOLIC ACID
  448. FOSAMAX [Suspect]
     Active Substance: ALENDRONATE SODIUM
     Indication: Rheumatoid arthritis
  449. FOSAMAX [Suspect]
     Active Substance: ALENDRONATE SODIUM
     Route: 048
  450. FOSAMAX [Suspect]
     Active Substance: ALENDRONATE SODIUM
  451. FOSAMAX [Suspect]
     Active Substance: ALENDRONATE SODIUM
     Route: 058
  452. FOSAMAX [Suspect]
     Active Substance: ALENDRONATE SODIUM
     Route: 048
  453. FOSAMAX [Suspect]
     Active Substance: ALENDRONATE SODIUM
     Route: 048
  454. FOSAMAX [Suspect]
     Active Substance: ALENDRONATE SODIUM
  455. FOSAMAX [Suspect]
     Active Substance: ALENDRONATE SODIUM
  456. FOSAMAX [Suspect]
     Active Substance: ALENDRONATE SODIUM
  457. FOSAMAX [Suspect]
     Active Substance: ALENDRONATE SODIUM
     Route: 048
  458. FOSAMAX [Suspect]
     Active Substance: ALENDRONATE SODIUM
     Route: 048
  459. FOSAMAX [Suspect]
     Active Substance: ALENDRONATE SODIUM
     Route: 048
  460. FOSAMAX [Suspect]
     Active Substance: ALENDRONATE SODIUM
  461. FOSAMAX [Suspect]
     Active Substance: ALENDRONATE SODIUM
  462. FOSAMAX [Suspect]
     Active Substance: ALENDRONATE SODIUM
     Route: 050
  463. FOSAMAX [Suspect]
     Active Substance: ALENDRONATE SODIUM
  464. FOSAMAX [Suspect]
     Active Substance: ALENDRONATE SODIUM
  465. FOSAMAX [Suspect]
     Active Substance: ALENDRONATE SODIUM
     Route: 050
  466. FOSAMAX [Suspect]
     Active Substance: ALENDRONATE SODIUM
  467. FOSAMAX [Suspect]
     Active Substance: ALENDRONATE SODIUM
  468. FOSAMAX [Suspect]
     Active Substance: ALENDRONATE SODIUM
     Route: 050
  469. FOSAMAX [Suspect]
     Active Substance: ALENDRONATE SODIUM
  470. FOSAMAX [Suspect]
     Active Substance: ALENDRONATE SODIUM
     Route: 050
  471. FOSAMAX [Suspect]
     Active Substance: ALENDRONATE SODIUM
     Route: 050
  472. FOSAMAX [Suspect]
     Active Substance: ALENDRONATE SODIUM
     Route: 050
  473. HYDROXYCHLOROQUINE [Suspect]
     Active Substance: HYDROXYCHLOROQUINE
     Indication: Rheumatoid arthritis
     Dosage: 400 MG, QD
  474. HYDROXYCHLOROQUINE [Suspect]
     Active Substance: HYDROXYCHLOROQUINE
     Indication: Product used for unknown indication
     Dosage: 400 MG, QD
  475. HYDROXYCHLOROQUINE [Suspect]
     Active Substance: HYDROXYCHLOROQUINE
  476. HYDROXYCHLOROQUINE [Suspect]
     Active Substance: HYDROXYCHLOROQUINE
  477. HYDROXYCHLOROQUINE [Suspect]
     Active Substance: HYDROXYCHLOROQUINE
     Dosage: 400 MG, QD
  478. HYDROXYCHLOROQUINE [Suspect]
     Active Substance: HYDROXYCHLOROQUINE
     Dosage: 400 MG, QD
     Route: 050
  479. HYDROXYCHLOROQUINE [Suspect]
     Active Substance: HYDROXYCHLOROQUINE
  480. HYDROXYCHLOROQUINE [Suspect]
     Active Substance: HYDROXYCHLOROQUINE
  481. HYDROXYCHLOROQUINE [Suspect]
     Active Substance: HYDROXYCHLOROQUINE
  482. HYDROXYCHLOROQUINE [Suspect]
     Active Substance: HYDROXYCHLOROQUINE
  483. HYDROXYCHLOROQUINE [Suspect]
     Active Substance: HYDROXYCHLOROQUINE
     Route: 058
  484. HYDROXYCHLOROQUINE [Suspect]
     Active Substance: HYDROXYCHLOROQUINE
     Route: 048
  485. HYDROXYCHLOROQUINE [Suspect]
     Active Substance: HYDROXYCHLOROQUINE
     Dosage: 40 MG, QD
  486. HYDROXYCHLOROQUINE [Suspect]
     Active Substance: HYDROXYCHLOROQUINE
  487. HYDROXYCHLOROQUINE [Suspect]
     Active Substance: HYDROXYCHLOROQUINE
     Route: 050
  488. HYDROXYCHLOROQUINE [Suspect]
     Active Substance: HYDROXYCHLOROQUINE
     Route: 050
  489. HYDROXYCHLOROQUINE [Suspect]
     Active Substance: HYDROXYCHLOROQUINE
  490. COSENTYX [Concomitant]
     Active Substance: SECUKINUMAB
     Indication: Product used for unknown indication
  491. ADALIMUMAB [Suspect]
     Active Substance: ADALIMUMAB
     Indication: Rheumatoid arthritis
     Route: 058
  492. ADALIMUMAB [Suspect]
     Active Substance: ADALIMUMAB
     Indication: Psoriatic arthropathy
     Route: 050
  493. ADALIMUMAB [Suspect]
     Active Substance: ADALIMUMAB
     Route: 042
  494. ADALIMUMAB [Suspect]
     Active Substance: ADALIMUMAB
  495. ADALIMUMAB [Suspect]
     Active Substance: ADALIMUMAB
     Route: 058
  496. ALENDRONATE SODIUM [Suspect]
     Active Substance: ALENDRONATE SODIUM
     Indication: Rheumatoid arthritis
     Route: 048
  497. ALENDRONATE SODIUM [Suspect]
     Active Substance: ALENDRONATE SODIUM
  498. ALENDRONATE SODIUM [Suspect]
     Active Substance: ALENDRONATE SODIUM
     Route: 048
  499. ALENDRONATE SODIUM [Suspect]
     Active Substance: ALENDRONATE SODIUM
     Route: 050
  500. ALENDRONATE SODIUM [Suspect]
     Active Substance: ALENDRONATE SODIUM
  501. ALENDRONATE SODIUM [Suspect]
     Active Substance: ALENDRONATE SODIUM
     Route: 050
  502. LEFLUNOMIDE [Suspect]
     Active Substance: LEFLUNOMIDE
     Indication: Rheumatoid arthritis
     Route: 048
  503. LEFLUNOMIDE [Suspect]
     Active Substance: LEFLUNOMIDE
     Route: 048
  504. LEFLUNOMIDE [Suspect]
     Active Substance: LEFLUNOMIDE
     Route: 048
  505. LEFLUNOMIDE [Suspect]
     Active Substance: LEFLUNOMIDE
     Route: 050
  506. LEFLUNOMIDE [Suspect]
     Active Substance: LEFLUNOMIDE
     Route: 050
  507. MYCOPHENOLATE MOFETIL [Suspect]
     Active Substance: MYCOPHENOLATE MOFETIL
     Indication: Product used for unknown indication
  508. MYCOPHENOLATE MOFETIL [Suspect]
     Active Substance: MYCOPHENOLATE MOFETIL
  509. RITUXIMAB [Suspect]
     Active Substance: RITUXIMAB
     Indication: Rheumatoid arthritis
     Route: 042
  510. RITUXIMAB [Suspect]
     Active Substance: RITUXIMAB
     Route: 058
  511. RITUXIMAB [Suspect]
     Active Substance: RITUXIMAB
  512. RITUXIMAB [Suspect]
     Active Substance: RITUXIMAB
  513. RITUXIMAB [Suspect]
     Active Substance: RITUXIMAB
     Route: 058
  514. RITUXIMAB [Suspect]
     Active Substance: RITUXIMAB
  515. RITUXIMAB [Suspect]
     Active Substance: RITUXIMAB
     Route: 050
  516. RITUXIMAB [Suspect]
     Active Substance: RITUXIMAB
     Route: 050
  517. RITUXIMAB [Suspect]
     Active Substance: RITUXIMAB
     Route: 050
  518. RITUXIMAB [Suspect]
     Active Substance: RITUXIMAB
  519. PREGABALIN [Suspect]
     Active Substance: PREGABALIN
     Indication: Product used for unknown indication
  520. PREGABALIN [Suspect]
     Active Substance: PREGABALIN
  521. ERELZI [Suspect]
     Active Substance: ETANERCEPT-SZZS
     Indication: Rheumatoid arthritis
     Dosage: 50 MG, QW
     Route: 050
  522. ERELZI [Suspect]
     Active Substance: ETANERCEPT-SZZS
  523. ERELZI [Suspect]
     Active Substance: ETANERCEPT-SZZS
  524. ERELZI [Suspect]
     Active Substance: ETANERCEPT-SZZS
     Route: 058
  525. ERELZI [Suspect]
     Active Substance: ETANERCEPT-SZZS
     Dosage: 50 MG, QW
  526. ERELZI [Suspect]
     Active Substance: ETANERCEPT-SZZS
  527. ERELZI [Suspect]
     Active Substance: ETANERCEPT-SZZS
     Route: 050
  528. ERELZI [Suspect]
     Active Substance: ETANERCEPT-SZZS
  529. ASACOL [Suspect]
     Active Substance: MESALAMINE
     Indication: Product used for unknown indication
  530. ASACOL [Suspect]
     Active Substance: MESALAMINE
  531. CALCIUM GLUBIONATE [Suspect]
     Active Substance: CALCIUM GLUBIONATE
     Indication: Product used for unknown indication
  532. CALCIUM GLUBIONATE [Suspect]
     Active Substance: CALCIUM GLUBIONATE
  533. CALCIUM GLUBIONATE [Suspect]
     Active Substance: CALCIUM GLUBIONATE
  534. CALCIUM GLUBIONATE [Suspect]
     Active Substance: CALCIUM GLUBIONATE
  535. CALCIUM GLUBIONATE [Suspect]
     Active Substance: CALCIUM GLUBIONATE
  536. CALCIUM GLUBIONATE [Suspect]
     Active Substance: CALCIUM GLUBIONATE
  537. CERTOLIZUMAB PEGOL [Suspect]
     Active Substance: CERTOLIZUMAB PEGOL
     Indication: Product used for unknown indication
  538. CERTOLIZUMAB PEGOL [Suspect]
     Active Substance: CERTOLIZUMAB PEGOL
  539. CETIRIZINE HYDROCHLORIDE AND PSEUDOEPHEDRINE HYDROCHLORIDE [Suspect]
     Active Substance: CETIRIZINE HYDROCHLORIDE\PSEUDOEPHEDRINE HYDROCHLORIDE
     Indication: Rheumatoid arthritis
     Dosage: 10 MG, QD
  540. CETIRIZINE HYDROCHLORIDE AND PSEUDOEPHEDRINE HYDROCHLORIDE [Suspect]
     Active Substance: CETIRIZINE HYDROCHLORIDE\PSEUDOEPHEDRINE HYDROCHLORIDE
  541. CETIRIZINE HYDROCHLORIDE AND PSEUDOEPHEDRINE HYDROCHLORIDE [Suspect]
     Active Substance: CETIRIZINE HYDROCHLORIDE\PSEUDOEPHEDRINE HYDROCHLORIDE
  542. CETIRIZINE HYDROCHLORIDE AND PSEUDOEPHEDRINE HYDROCHLORIDE [Suspect]
     Active Substance: CETIRIZINE HYDROCHLORIDE\PSEUDOEPHEDRINE HYDROCHLORIDE
  543. ORENCIA [Suspect]
     Active Substance: ABATACEPT
     Indication: Rheumatoid arthritis
     Route: 058
  544. ORENCIA [Suspect]
     Active Substance: ABATACEPT
  545. ORENCIA [Suspect]
     Active Substance: ABATACEPT
     Dosage: 6 MG, QD, DOSE FORM: SOLUTION FOR INJECTION
  546. ORENCIA [Suspect]
     Active Substance: ABATACEPT
     Route: 042
  547. ORENCIA [Suspect]
     Active Substance: ABATACEPT
     Route: 042
  548. ORENCIA [Suspect]
     Active Substance: ABATACEPT
     Route: 042
  549. ORENCIA [Suspect]
     Active Substance: ABATACEPT
  550. ORENCIA [Suspect]
     Active Substance: ABATACEPT
     Route: 042
  551. ORENCIA [Suspect]
     Active Substance: ABATACEPT
     Dosage: 125 MG, QW,  DOSE FORM: SOLUTION FOR INJECTION
     Route: 058
  552. ORENCIA [Suspect]
     Active Substance: ABATACEPT
     Dosage: 18 MG, QD,  DOSE FORM: SOLUTION FOR INJECTION
     Route: 058
  553. ORENCIA [Suspect]
     Active Substance: ABATACEPT
     Route: 058
  554. ORENCIA [Suspect]
     Active Substance: ABATACEPT
     Dosage: 120 MG, QW
     Route: 058
  555. ORENCIA [Suspect]
     Active Substance: ABATACEPT
     Dosage: 120 MG, QW
     Route: 058
  556. ORENCIA [Suspect]
     Active Substance: ABATACEPT
     Dosage: 6 MG, QD, ROA: ORAL USE
  557. ORENCIA [Suspect]
     Active Substance: ABATACEPT
  558. ORENCIA [Suspect]
     Active Substance: ABATACEPT
  559. ORENCIA [Suspect]
     Active Substance: ABATACEPT
  560. ORENCIA [Suspect]
     Active Substance: ABATACEPT
     Dosage: 17.875 MG, QD
     Route: 058
  561. ORENCIA [Suspect]
     Active Substance: ABATACEPT
     Route: 050
  562. ORENCIA [Suspect]
     Active Substance: ABATACEPT
  563. ORENCIA [Suspect]
     Active Substance: ABATACEPT
     Route: 050
  564. ORENCIA [Suspect]
     Active Substance: ABATACEPT
     Route: 050
  565. ORENCIA [Suspect]
     Active Substance: ABATACEPT
  566. ORENCIA [Suspect]
     Active Substance: ABATACEPT
     Route: 050
  567. ORENCIA [Suspect]
     Active Substance: ABATACEPT
     Route: 050
  568. ORENCIA [Suspect]
     Active Substance: ABATACEPT
     Route: 050
  569. ORENCIA [Suspect]
     Active Substance: ABATACEPT
  570. PERIOGARD [Suspect]
     Active Substance: CHLORHEXIDINE GLUCONATE
     Indication: Rheumatoid arthritis
     Route: 048
  571. PERIOGARD [Suspect]
     Active Substance: CHLORHEXIDINE GLUCONATE
  572. PERIOGARD [Suspect]
     Active Substance: CHLORHEXIDINE GLUCONATE
  573. PERIOGARD [Suspect]
     Active Substance: CHLORHEXIDINE GLUCONATE
  574. PERIOGARD [Suspect]
     Active Substance: CHLORHEXIDINE GLUCONATE
  575. PERIOGARD [Suspect]
     Active Substance: CHLORHEXIDINE GLUCONATE
  576. PERIOGARD [Suspect]
     Active Substance: CHLORHEXIDINE GLUCONATE
  577. PERIOGARD [Suspect]
     Active Substance: CHLORHEXIDINE GLUCONATE
     Route: 050
  578. CIMZIA [Suspect]
     Active Substance: CERTOLIZUMAB PEGOL
     Indication: Rheumatoid arthritis
  579. CIMZIA [Suspect]
     Active Substance: CERTOLIZUMAB PEGOL
     Indication: Psoriatic arthropathy
  580. CIMZIA [Suspect]
     Active Substance: CERTOLIZUMAB PEGOL
     Indication: Psoriasis
     Route: 050
  581. CIMZIA [Suspect]
     Active Substance: CERTOLIZUMAB PEGOL
  582. CIMZIA [Suspect]
     Active Substance: CERTOLIZUMAB PEGOL
  583. CIMZIA [Suspect]
     Active Substance: CERTOLIZUMAB PEGOL
  584. CIMZIA [Suspect]
     Active Substance: CERTOLIZUMAB PEGOL
  585. CIMZIA [Suspect]
     Active Substance: CERTOLIZUMAB PEGOL
  586. CIMZIA [Suspect]
     Active Substance: CERTOLIZUMAB PEGOL
  587. CIMZIA [Suspect]
     Active Substance: CERTOLIZUMAB PEGOL
     Dosage: UNK, QW, DOSE FORM: SOLUTION FOR INJECTION
     Route: 050
  588. CIMZIA [Suspect]
     Active Substance: CERTOLIZUMAB PEGOL
  589. CIMZIA [Suspect]
     Active Substance: CERTOLIZUMAB PEGOL
     Route: 058
  590. CIMZIA [Suspect]
     Active Substance: CERTOLIZUMAB PEGOL
  591. CIMZIA [Suspect]
     Active Substance: CERTOLIZUMAB PEGOL
     Route: 058
  592. CIMZIA [Suspect]
     Active Substance: CERTOLIZUMAB PEGOL
  593. CIMZIA [Suspect]
     Active Substance: CERTOLIZUMAB PEGOL
  594. CIMZIA [Suspect]
     Active Substance: CERTOLIZUMAB PEGOL
     Route: 050
  595. CIMZIA [Suspect]
     Active Substance: CERTOLIZUMAB PEGOL
  596. CIMZIA [Suspect]
     Active Substance: CERTOLIZUMAB PEGOL
     Route: 050
  597. CIMZIA [Suspect]
     Active Substance: CERTOLIZUMAB PEGOL
     Route: 050
  598. CIMZIA [Suspect]
     Active Substance: CERTOLIZUMAB PEGOL
  599. CIMZIA [Suspect]
     Active Substance: CERTOLIZUMAB PEGOL
  600. CIMZIA [Suspect]
     Active Substance: CERTOLIZUMAB PEGOL
  601. DESOXIMETASONE [Suspect]
     Active Substance: DESOXIMETASONE
     Indication: Rheumatoid arthritis
  602. DESOXIMETASONE [Suspect]
     Active Substance: DESOXIMETASONE
  603. DESOXIMETASONE [Suspect]
     Active Substance: DESOXIMETASONE
  604. DESOXIMETASONE [Suspect]
     Active Substance: DESOXIMETASONE
  605. DESOXIMETASONE [Suspect]
     Active Substance: DESOXIMETASONE
  606. DESOXIMETASONE [Suspect]
     Active Substance: DESOXIMETASONE
  607. DESOXIMETASONE [Suspect]
     Active Substance: DESOXIMETASONE
  608. DESOXIMETASONE [Suspect]
     Active Substance: DESOXIMETASONE
     Dosage: 25 MG, QW
     Route: 050
  609. DESOXIMETASONE [Suspect]
     Active Substance: DESOXIMETASONE
  610. DESOXIMETASONE [Suspect]
     Active Substance: DESOXIMETASONE
  611. DESOXIMETASONE [Suspect]
     Active Substance: DESOXIMETASONE
  612. DESOXIMETASONE [Suspect]
     Active Substance: DESOXIMETASONE
  613. DESOXIMETASONE [Suspect]
     Active Substance: DESOXIMETASONE
     Route: 058
  614. DESOXIMETASONE [Suspect]
     Active Substance: DESOXIMETASONE
  615. DESOXIMETASONE [Suspect]
     Active Substance: DESOXIMETASONE
  616. DESOXIMETASONE [Suspect]
     Active Substance: DESOXIMETASONE
  617. DESOXIMETASONE [Suspect]
     Active Substance: DESOXIMETASONE
  618. DESOXIMETASONE [Suspect]
     Active Substance: DESOXIMETASONE
  619. DESOXIMETASONE [Suspect]
     Active Substance: DESOXIMETASONE
  620. DESOXIMETASONE [Suspect]
     Active Substance: DESOXIMETASONE
     Route: 050
  621. DESOXIMETASONE [Suspect]
     Active Substance: DESOXIMETASONE
  622. DESOXIMETASONE [Suspect]
     Active Substance: DESOXIMETASONE
  623. DESOXIMETASONE [Suspect]
     Active Substance: DESOXIMETASONE
     Route: 050
  624. DESOXIMETASONE [Suspect]
     Active Substance: DESOXIMETASONE
     Route: 050
  625. DESOXIMETASONE [Suspect]
     Active Substance: DESOXIMETASONE
  626. DESOXIMETASONE [Suspect]
     Active Substance: DESOXIMETASONE
     Route: 050
  627. DESOXIMETASONE [Suspect]
     Active Substance: DESOXIMETASONE
  628. DESOXIMETASONE [Suspect]
     Active Substance: DESOXIMETASONE
     Route: 050
  629. DESOXIMETASONE [Suspect]
     Active Substance: DESOXIMETASONE
  630. DESOXIMETASONE [Suspect]
     Active Substance: DESOXIMETASONE
  631. DESOXIMETASONE [Suspect]
     Active Substance: DESOXIMETASONE
  632. DESOXIMETASONE [Suspect]
     Active Substance: DESOXIMETASONE
  633. DESOXIMETASONE [Suspect]
     Active Substance: DESOXIMETASONE
     Route: 050
  634. DESOXIMETASONE [Suspect]
     Active Substance: DESOXIMETASONE
     Route: 050
  635. DESOXIMETASONE [Suspect]
     Active Substance: DESOXIMETASONE
  636. DESOXIMETASONE [Suspect]
     Active Substance: DESOXIMETASONE
     Route: 050
  637. DESOXIMETASONE [Suspect]
     Active Substance: DESOXIMETASONE
     Route: 050
  638. CALTRATE [Suspect]
     Active Substance: CALCIUM CARBONATE
     Indication: Product used for unknown indication
  639. CALTRATE [Suspect]
     Active Substance: CALCIUM CARBONATE

REACTIONS (10)
  - Helicobacter infection [Fatal]
  - Headache [Fatal]
  - Hand deformity [Fatal]
  - Hypersensitivity [Fatal]
  - Gait inability [Fatal]
  - Gastrointestinal disorder [Fatal]
  - Glossodynia [Fatal]
  - Fatigue [Fatal]
  - Folliculitis [Fatal]
  - Fibromyalgia [Fatal]
